FAERS Safety Report 6481545-X (Version None)
Quarter: 2009Q4

REPORT INFORMATION
  Report Type: 
  Country: None (occurrence: None)
  Receive Date: 20091123
  Receipt Date: 20090909
  Transmission Date: 20100525
  Serious: No
  Sender: FDA-Public Use
  Company Number: 8048228

PATIENT
  Age: 25 Year
  Sex: Female
  Weight: 89.81 kg

DRUGS (7)
  1. CIMZIA [Suspect]
     Indication: CROHN'S DISEASE
     Dosage: 400 MG SC
     Route: 058
     Dates: start: 20090617, end: 20090101
  2. CYMBALTA [Concomitant]
  3. BENZTROPINE MESYLATE [Concomitant]
  4. LITHIUM CARBONATE [Concomitant]
  5. WELLBUTRIN [Concomitant]
  6. SEROQUEL [Concomitant]
  7. ALPRAZOLAM [Concomitant]

REACTIONS (8)
  - ABDOMINAL PAIN UPPER [None]
  - DYSPHONIA [None]
  - HAEMATOCHEZIA [None]
  - HYPERSOMNIA [None]
  - MALAISE [None]
  - NAUSEA [None]
  - PRODUCTIVE COUGH [None]
  - SINUS DISORDER [None]
